FAERS Safety Report 26057449 (Version 1)
Quarter: 2025Q4

REPORT INFORMATION
  Report Type: Spontaneous
  Country: US (occurrence: US)
  Receive Date: 20251118
  Receipt Date: 20251118
  Transmission Date: 20260117
  Serious: No
  Sender: AMNEAL
  Company Number: US-AMNEAL PHARMACEUTICALS-2024-AMRX-04522

PATIENT
  Age: 17 Year

DRUGS (2)
  1. ISOTRETINOIN [Suspect]
     Active Substance: ISOTRETINOIN
     Dosage: 40 MG
     Route: 065
     Dates: start: 20240826
  2. ISOTRETINOIN [Suspect]
     Active Substance: ISOTRETINOIN
     Dosage: 30 MG
     Route: 065

REACTIONS (10)
  - Seborrhoeic dermatitis [Recovering/Resolving]
  - Dermatitis [Unknown]
  - Acne [Unknown]
  - Papule [Unknown]
  - Pustule [Unknown]
  - Skin discolouration [Unknown]
  - Visual impairment [Unknown]
  - Dry eye [Unknown]
  - Cheilitis [Unknown]
  - Xerosis [Unknown]

NARRATIVE: CASE EVENT DATE: 20240901
